FAERS Safety Report 25195308 (Version 1)
Quarter: 2025Q2

REPORT INFORMATION
  Report Type: Spontaneous
  Country: ES (occurrence: ES)
  Receive Date: 20250415
  Receipt Date: 20250415
  Transmission Date: 20250716
  Serious: Yes (Other)
  Sender: SANOFI AVENTIS
  Company Number: ES-SA-2025SA105398

PATIENT
  Age: 55 Year
  Sex: Female

DRUGS (3)
  1. ISATUXIMAB [Suspect]
     Active Substance: ISATUXIMAB
  2. CARFILZOMIB [Concomitant]
     Active Substance: CARFILZOMIB
     Dosage: UNK UNK, QW
  3. DEXAMETHASONE [Concomitant]
     Active Substance: DEXAMETHASONE

REACTIONS (1)
  - Thrombotic microangiopathy [Recovered/Resolved]
